FAERS Safety Report 21785558 (Version 2)
Quarter: 2023Q1

REPORT INFORMATION
  Report Type: Spontaneous
  Country: PL (occurrence: PL)
  Receive Date: 20221227
  Receipt Date: 20230104
  Transmission Date: 20230417
  Serious: Yes (Other)
  Sender: FDA-Public Use
  Company Number: PL-VIPHPROD-KWE-104-2022

PATIENT
  Age: 41 Year
  Sex: Male

DRUGS (10)
  1. TRAMADOL HYDROCHLORIDE [Interacting]
     Active Substance: TRAMADOL HYDROCHLORIDE
     Indication: Visceral pain
     Dosage: 200 MILLIGRAM, 1/DAY
     Route: 048
  2. TRAMADOL HYDROCHLORIDE [Interacting]
     Active Substance: TRAMADOL HYDROCHLORIDE
     Dosage: 300 MILLIGRAM, 1/DAY
     Route: 048
  3. OMEPRAZOLE [Interacting]
     Active Substance: OMEPRAZOLE
     Indication: Visceral pain
     Dosage: 40 MILLIGRAM, 1/DAY
     Route: 048
  4. QUETIAPINE [Interacting]
     Active Substance: QUETIAPINE
     Indication: Product used for unknown indication
     Dosage: 100 MILLIGRAM, 1/DAY
     Route: 048
  5. IBUPROFEN [Interacting]
     Active Substance: IBUPROFEN
     Indication: Visceral pain
     Dosage: 1800 MILLIGRAM, 1/DAY
     Route: 048
  6. ATORVASTATIN [Interacting]
     Active Substance: ATORVASTATIN
     Indication: Dyslipidaemia
     Dosage: 40 MILLIGRAM, 1/DAY
     Route: 048
  7. PREGABALIN [Concomitant]
     Active Substance: PREGABALIN
     Dosage: 75 MILLIGRAM, 1/DAY
     Route: 065
  8. METAMIZOLE [Concomitant]
     Active Substance: METAMIZOLE
     Indication: Visceral pain
     Dosage: 5000 MILLIGRAM, 1/DAY
     Route: 065
  9. BUPRENORPHINE [Concomitant]
     Active Substance: BUPRENORPHINE
     Indication: Visceral pain
     Dosage: 17.5 MICROGRAM, 1/HR
     Route: 062
  10. PITAVASTATIN [Concomitant]
     Active Substance: PITAVASTATIN
     Dosage: UNK
     Route: 065

REACTIONS (7)
  - Seizure [Unknown]
  - Pain [Unknown]
  - Anxiety [Unknown]
  - Drug interaction [Unknown]
  - Drug ineffective [Unknown]
  - Sleep disorder [Unknown]
  - Inadequate analgesia [Unknown]
